FAERS Safety Report 18866658 (Version 1)
Quarter: 2021Q1

REPORT INFORMATION
  Report Type: Report from Study
  Country: AU (occurrence: AU)
  Receive Date: 20210208
  Receipt Date: 20210208
  Transmission Date: 20210420
  Serious: Yes (Hospitalization)
  Sender: FDA-Public Use
  Company Number: AU-CELGENEUS-AUS-20210200562

PATIENT
  Age: 80 Year
  Sex: Male
  Weight: 62.92 kg

DRUGS (19)
  1. CC?90007 [Suspect]
     Active Substance: ENASIDENIB MESYLATE
     Indication: ACUTE MYELOID LEUKAEMIA
     Dosage: 100 MILLIGRAM
     Route: 048
     Dates: start: 20200807
  2. CC?90007 [Suspect]
     Active Substance: ENASIDENIB MESYLATE
     Dosage: 100 MILLIGRAM
     Route: 048
     Dates: end: 20210201
  3. SM 33 [Concomitant]
     Indication: PRODUCT USED FOR UNKNOWN INDICATION
     Dosage: SMEAR
     Route: 065
  4. DENTA?MED [Concomitant]
     Indication: PRODUCT USED FOR UNKNOWN INDICATION
     Dosage: 1 SMEAR
     Route: 065
  5. MAGNESIUM [Concomitant]
     Active Substance: MAGNESIUM
     Indication: PRODUCT USED FOR UNKNOWN INDICATION
     Dosage: 400 MILLIGRAM
     Route: 065
  6. FILGRASTIM [Concomitant]
     Active Substance: FILGRASTIM
     Indication: NEUTROPENIA
     Dosage: 300 MICROGRAM
     Route: 065
  7. POSACONAZOLE [Concomitant]
     Active Substance: POSACONAZOLE
     Indication: PRODUCT USED FOR UNKNOWN INDICATION
     Dosage: 300 MILLIGRAM
     Route: 065
  8. BETAMETHASONE. [Concomitant]
     Active Substance: BETAMETHASONE
     Indication: PRODUCT USED FOR UNKNOWN INDICATION
     Dosage: 1 SMEAR
     Route: 065
  9. MOVICOL [Concomitant]
     Active Substance: POLYETHYLENE GLYCOL 3350\POTASSIUM CHLORIDE\SODIUM BICARBONATE\SODIUM CHLORIDE
     Indication: CONSTIPATION
     Dosage: SACHETS
     Route: 065
  10. ZINC OXIDE. [Concomitant]
     Active Substance: ZINC OXIDE
     Indication: PRODUCT USED FOR UNKNOWN INDICATION
     Dosage: 1 SMEAR
     Route: 065
  11. DEFERASIROX. [Concomitant]
     Active Substance: DEFERASIROX
     Indication: BLOOD IRON INCREASED
     Dosage: 900 MILLIGRAM
     Route: 065
  12. ADVANTAN [Concomitant]
     Active Substance: METHYLPREDNISOLONE ACEPONATE
     Indication: PRODUCT USED FOR UNKNOWN INDICATION
     Dosage: 1 SMEAR
     Route: 065
  13. CEFALEXIN [Concomitant]
     Active Substance: CEPHALEXIN
     Indication: EAR OPERATION
     Dosage: 2000 MILLIGRAM
     Route: 065
     Dates: start: 20201222
  14. PIOGLITAZONE. [Suspect]
     Active Substance: PIOGLITAZONE
     Indication: ACUTE MYELOID LEUKAEMIA
     Dosage: 15 MILLIGRAM
     Route: 048
     Dates: start: 20200806
  15. SWISS HAIR AND NAILS MULTIVITAMIN [Concomitant]
     Indication: PRODUCT USED FOR UNKNOWN INDICATION
     Dosage: 1 TABLET
     Route: 065
  16. PARACETAMOL [Concomitant]
     Active Substance: ACETAMINOPHEN
     Indication: PROPHYLAXIS
     Dosage: 1000 MILLIGRAM
     Route: 065
  17. COLOXYL [Concomitant]
     Indication: CONSTIPATION
     Route: 065
  18. PIOGLITAZONE. [Suspect]
     Active Substance: PIOGLITAZONE
     Dosage: 15 MILLIGRAM
     Route: 048
     Dates: end: 20200903
  19. PRIMIDONE. [Concomitant]
     Active Substance: PRIMIDONE
     Indication: PRODUCT USED FOR UNKNOWN INDICATION
     Dosage: 500 MILLIGRAM
     Route: 065

REACTIONS (1)
  - Syncope [Recovered/Resolved]

NARRATIVE: CASE EVENT DATE: 20210201
